FAERS Safety Report 23581297 (Version 1)
Quarter: 2024Q1

REPORT INFORMATION
  Report Type: Spontaneous
  Country: US (occurrence: None)
  Receive Date: 20240229
  Receipt Date: 20240229
  Transmission Date: 20240409
  Serious: No
  Sender: FDA-Public Use
  Company Number: None

PATIENT
  Age: 82 Year
  Sex: Female
  Weight: 49.44 kg

DRUGS (10)
  1. PAXLOVID [Suspect]
     Active Substance: NIRMATRELVIR\RITONAVIR
     Indication: COVID-19
     Dosage: FREQUENCY : TWICE A DAY;?STRENGTH: 300MG; 100MG DOSE PACK?
     Route: 048
     Dates: start: 20231228, end: 20231230
  2. ELIQUIS [Concomitant]
     Active Substance: APIXABAN
  3. BALSALAZIDE [Concomitant]
     Active Substance: BALSALAZIDE
  4. LABETALOL [Concomitant]
  5. GABAPENTIN [Concomitant]
     Active Substance: GABAPENTIN
  6. ROSUVASTATIN [Concomitant]
     Active Substance: ROSUVASTATIN
  7. FINASTERIDE [Concomitant]
     Active Substance: FINASTERIDE
  8. TRAMADOL [Concomitant]
  9. TACROLIMUS [Concomitant]
     Active Substance: TACROLIMUS
  10. rpolia [Concomitant]

REACTIONS (3)
  - Rash erythematous [None]
  - Rash pruritic [None]
  - Rash papular [None]

NARRATIVE: CASE EVENT DATE: 20231230
